FAERS Safety Report 19675890 (Version 2)
Quarter: 2021Q3

REPORT INFORMATION
  Report Type: Spontaneous
  Country: US (occurrence: US)
  Receive Date: 20210809
  Receipt Date: 20210817
  Transmission Date: 20211014
  Serious: Yes (Other)
  Sender: FDA-Public Use
  Company Number: US-AMNEAL PHARMACEUTICALS-2021-AMRX-03094

PATIENT
  Sex: Female

DRUGS (1)
  1. ADRENACLICK [Suspect]
     Active Substance: EPINEPHRINE
     Indication: ANAPHYLACTIC REACTION
     Dosage: UNK
     Route: 065
     Dates: start: 20210728, end: 20210728

REACTIONS (2)
  - No adverse event [Unknown]
  - Device deployment issue [Unknown]

NARRATIVE: CASE EVENT DATE: 20210728
